FAERS Safety Report 12632294 (Version 3)
Quarter: 2016Q3

REPORT INFORMATION
  Report Type: Spontaneous
  Country: US (occurrence: US)
  Receive Date: 20160808
  Receipt Date: 20160826
  Transmission Date: 20161109
  Serious: No
  Sender: FDA-Public Use
  Company Number: US-BEH-2016062330

PATIENT
  Age: 39 Year
  Sex: Female
  Weight: 73.48 kg

DRUGS (30)
  1. HIZENTRA [Suspect]
     Active Substance: HUMAN IMMUNOGLOBULIN G
     Indication: HYPOGAMMAGLOBULINAEMIA
     Dosage: 12 G, QW
     Route: 058
     Dates: start: 20151009
  2. ADVAIR HFA [Concomitant]
     Active Substance: FLUTICASONE PROPIONATE\SALMETEROL XINAFOATE
  3. VITAMIN C [Concomitant]
     Active Substance: ASCORBIC ACID
  4. DESONIDE. [Concomitant]
     Active Substance: DESONIDE
  5. CLOBETASOL [Concomitant]
     Active Substance: CLOBETASOL
  6. ACIPHEX [Concomitant]
     Active Substance: RABEPRAZOLE SODIUM
  7. CALCIUM [Concomitant]
     Active Substance: CALCIUM
  8. HIZENTRA [Suspect]
     Active Substance: HUMAN IMMUNOGLOBULIN G
     Dosage: UNK
     Route: 065
  9. RIZATRIPTAN. [Concomitant]
     Active Substance: RIZATRIPTAN
  10. QVAR [Concomitant]
     Active Substance: BECLOMETHASONE DIPROPIONATE
  11. ZYRTEC [Concomitant]
     Active Substance: CETIRIZINE HYDROCHLORIDE
  12. IPRATROPIUM-ALBUTEROL [Concomitant]
     Active Substance: ALBUTEROL\IPRATROPIUM
  13. VITAMIN D3 [Concomitant]
     Active Substance: CHOLECALCIFEROL
  14. KETOCONAZOLE. [Concomitant]
     Active Substance: KETOCONAZOLE
  15. DIAZEPAM. [Concomitant]
     Active Substance: DIAZEPAM
  16. VENTOLIN [Concomitant]
     Active Substance: ALBUTEROL SULFATE
  17. MIRENA [Concomitant]
     Active Substance: LEVONORGESTREL
  18. LIDOCAINE. [Concomitant]
     Active Substance: LIDOCAINE
  19. SPIRIVA [Concomitant]
     Active Substance: TIOTROPIUM BROMIDE MONOHYDRATE
  20. NORCO [Concomitant]
     Active Substance: ACETAMINOPHEN\HYDROCODONE BITARTRATE
  21. DIPHENHYDRAMINE. [Concomitant]
     Active Substance: DIPHENHYDRAMINE
  22. ACETAMINOPHEN. [Concomitant]
     Active Substance: ACETAMINOPHEN
  23. RABEPRAZOLE [Concomitant]
     Active Substance: RABEPRAZOLE
  24. ACARBOSE. [Concomitant]
     Active Substance: ACARBOSE
  25. FUROSEMIDE. [Concomitant]
     Active Substance: FUROSEMIDE
  26. BENZONATATE. [Concomitant]
     Active Substance: BENZONATATE
  27. ONDANSETRON ODT [Concomitant]
     Active Substance: ONDANSETRON
  28. EPIPEN [Concomitant]
     Active Substance: EPINEPHRINE
  29. PREDNISONE. [Concomitant]
     Active Substance: PREDNISONE
  30. VALACYCLOVIR [Concomitant]
     Active Substance: VALACYCLOVIR HYDROCHLORIDE

REACTIONS (2)
  - Sinusitis [Unknown]
  - Sinusitis [Not Recovered/Not Resolved]

NARRATIVE: CASE EVENT DATE: 20160705
